FAERS Safety Report 9162541 (Version 3)
Quarter: 2013Q3

REPORT INFORMATION
  Report Type: Spontaneous
  Country: US (occurrence: US)
  Receive Date: 20130314
  Receipt Date: 20130701
  Transmission Date: 20140515
  Serious: Yes (Other)
  Sender: FDA-Public Use
  Company Number: US-PFIZER INC-2013084682

PATIENT
  Age: 74 Year
  Sex: Male
  Weight: 74.38 kg

DRUGS (8)
  1. ATORVASTATIN CALCIUM [Suspect]
     Indication: BLOOD CHOLESTEROL ABNORMAL
     Dosage: 20 MG, DAILY
     Route: 048
     Dates: start: 201211, end: 201301
  2. ATORVASTATIN CALCIUM [Suspect]
     Dosage: 20 MG, DAILY
     Dates: start: 201301, end: 201303
  3. ATORVASTATIN CALCIUM [Suspect]
     Dosage: 20 MG, DAILY
     Route: 048
     Dates: start: 201206, end: 201301
  4. LIPITOR [Suspect]
     Indication: BLOOD CHOLESTEROL ABNORMAL
     Dosage: 10 MG, DAILY
  5. LIPITOR [Suspect]
     Dosage: 20 MG, DAILY
  6. LIPITOR [Suspect]
     Dosage: 20 MG, DAILY
     Dates: start: 201303
  7. NORVASC [Concomitant]
     Indication: BLOOD PRESSURE ABNORMAL
     Dosage: 15 MG, DAILY
  8. ASPIRIN [Concomitant]
     Indication: CARDIAC DISORDER
     Dosage: 81 MG, DAILY

REACTIONS (3)
  - Arthritis [Unknown]
  - Arthralgia [Not Recovered/Not Resolved]
  - Dysstasia [Unknown]
